FAERS Safety Report 9458360 (Version 2)
Quarter: 2013Q4

REPORT INFORMATION
  Report Type: Spontaneous
  Country: US (occurrence: US)
  Receive Date: 20130814
  Receipt Date: 20131010
  Transmission Date: 20140711
  Serious: Yes (Other)
  Sender: FDA-Public Use
  Company Number: US-PFIZER INC-2013233060

PATIENT
  Age: 55 Year
  Sex: Female
  Weight: 90.7 kg

DRUGS (3)
  1. CORTEF [Suspect]
     Indication: ADRENAL INSUFFICIENCY
     Dosage: 2.5 MG AM, 2.5 MG NOON, 2.5 MG PM
     Route: 048
     Dates: start: 201205, end: 201211
  2. XANAX [Concomitant]
     Indication: FIBROMYALGIA
     Dosage: 0.25 MG, 3X/DAY AS NEEDED
     Dates: start: 1987
  3. XANAX [Concomitant]
     Indication: INNER EAR DISORDER

REACTIONS (2)
  - Visual impairment [Not Recovered/Not Resolved]
  - Cataract [Unknown]
